FAERS Safety Report 12271480 (Version 3)
Quarter: 2016Q2

REPORT INFORMATION
  Report Type: Report from Study
  Country: TR (occurrence: TR)
  Receive Date: 20160415
  Receipt Date: 20160614
  Transmission Date: 20160815
  Serious: Yes (Hospitalization, Other)
  Sender: FDA-Public Use
  Company Number: PHHO2016TR004662

PATIENT
  Age: 33 Year
  Sex: Male
  Weight: 74.7 kg

DRUGS (2)
  1. SOM230 [Suspect]
     Active Substance: PASIREOTIDE
     Dosage: UNK
     Route: 058
     Dates: start: 20160413
  2. SOM230 [Suspect]
     Active Substance: PASIREOTIDE
     Indication: PITUITARY-DEPENDENT CUSHING^S SYNDROME
     Dosage: 0.9 MG
     Route: 058
     Dates: start: 20150204, end: 20160401

REACTIONS (2)
  - Syncope [Recovered/Resolved]
  - Glucocorticoid deficiency [Recovering/Resolving]

NARRATIVE: CASE EVENT DATE: 20160326
